FAERS Safety Report 7453588-0 (Version None)
Quarter: 2011Q2

REPORT INFORMATION
  Report Type: 
  Country: None (occurrence: None)
  Receive Date: 20110502
  Receipt Date: 20110318
  Transmission Date: 20111010
  Serious: Yes (Hospitalization, Other)
  Sender: FDA-Public Use
  Company Number: US-BAYER-201028379NA

PATIENT
  Age: 30 Year
  Sex: Female
  Weight: 77 kg

DRUGS (19)
  1. YASMIN [Suspect]
     Indication: CONTRACEPTION
  2. ANTIBIOTICS [Concomitant]
  3. YASMIN [Suspect]
  4. ZYRTEC [Concomitant]
  5. YASMIN [Suspect]
     Indication: PREMENSTRUAL SYNDROME
     Dosage: UNK
     Dates: start: 20080101, end: 20090901
  6. CEPHALEXIN [Concomitant]
  7. CLOBETASOL PROPIONATE [Concomitant]
  8. WELLBUTRIN [Concomitant]
  9. YAZ [Suspect]
     Indication: PREMENSTRUAL SYNDROME
  10. ASCORBIC ACID [Concomitant]
  11. ASACOL [Concomitant]
     Indication: COLITIS
     Dosage: UNK
     Dates: start: 19980101, end: 20080101
  12. OCELLA [Suspect]
     Indication: CONTRACEPTION
     Route: 048
     Dates: start: 20090401, end: 20090601
  13. OCELLA [Suspect]
     Indication: PREMENSTRUAL SYNDROME
  14. YAZ [Suspect]
     Indication: CONTRACEPTION
     Dosage: UNK
     Dates: start: 20080101, end: 20090901
  15. NSAID'S [Concomitant]
  16. PHENTERMINE [Concomitant]
  17. OCELLA [Suspect]
  18. WELLBUTRIN [Concomitant]
     Indication: DEPRESSION
     Dosage: UNK
     Dates: start: 20090201, end: 20100301
  19. DICYCLOMINE [Concomitant]

REACTIONS (5)
  - PAIN [None]
  - CHOLECYSTITIS CHRONIC [None]
  - GALLBLADDER INJURY [None]
  - CHOLELITHIASIS [None]
  - EMOTIONAL DISTRESS [None]
